FAERS Safety Report 5038594-8 (Version None)
Quarter: 2006Q2

REPORT INFORMATION
  Report Type: 
  Country: None (occurrence: None)
  Receive Date: 20060628
  Receipt Date: 20060628
  Transmission Date: 20061013
  Serious: Yes (Hospitalization)
  Sender: FDA-Public Use
  Company Number: None

PATIENT
  Age: 73 Year
  Sex: Male
  Weight: 104.3273 kg

DRUGS (16)
  1. PREGABALIN 75 MG PFIZER [Suspect]
     Indication: HEADACHE
     Dosage: 75 MG TWICE DAILY PO
     Route: 048
     Dates: start: 20060501, end: 20060619
  2. ASPIRIN [Concomitant]
  3. NOVOLOG [Concomitant]
  4. LANTUS [Concomitant]
  5. RESTASIS [Concomitant]
  6. ATROVENT [Concomitant]
  7. ACTOS [Concomitant]
  8. LIPITOR [Concomitant]
  9. ZETIA [Concomitant]
  10. NORVASC [Concomitant]
  11. PROTONIX [Concomitant]
  12. PROSCAR [Concomitant]
  13. WELLBUTRIN [Concomitant]
  14. CLARINEX [Concomitant]
  15. PAXIL [Concomitant]
  16. AVODART [Concomitant]

REACTIONS (5)
  - ARTHRALGIA [None]
  - BACK PAIN [None]
  - CONFUSIONAL STATE [None]
  - DYSARTHRIA [None]
  - TREMOR [None]
